FAERS Safety Report 10367342 (Version 1)
Quarter: 2014Q3

REPORT INFORMATION
  Report Type: Spontaneous
  Country: US (occurrence: None)
  Receive Date: 20140805
  Receipt Date: 20140805
  Transmission Date: 20150326
  Serious: Yes (Disabling)
  Sender: FDA-Public Use
  Company Number: None

PATIENT
  Age: 46 Year
  Sex: Female
  Weight: 78.02 kg

DRUGS (2)
  1. VENLAFAXINE HCL ER 150 MG ZYDUS PHARMACEU [Suspect]
     Active Substance: VENLAFAXINE HYDROCHLORIDE
     Dosage: 1 PILL DAILY ONCE DAILY TAKEN BY MOUTH
     Route: 048
     Dates: start: 20140714, end: 20140725
  2. VENLAFAXINE HCL ER 150 MG ZYDUS PHARMACEU [Suspect]
     Active Substance: VENLAFAXINE HYDROCHLORIDE
     Indication: DEPRESSION
     Dosage: 1 PILL DAILY ONCE DAILY TAKEN BY MOUTH
     Route: 048
     Dates: start: 20140714, end: 20140725

REACTIONS (3)
  - Restlessness [None]
  - Anxiety [None]
  - Insomnia [None]

NARRATIVE: CASE EVENT DATE: 20140714
